FAERS Safety Report 7970140-9 (Version None)
Quarter: 2011Q4

REPORT INFORMATION
  Report Type: 
  Country: None (occurrence: None)
  Receive Date: 20111212
  Receipt Date: 20111205
  Transmission Date: 20120403
  Serious: Yes (Other)
  Sender: FDA-Public Use
  Company Number: AU-B.I. PHARMACEUTICALS,INC./RIDGEFIELD-2011-AU-01992AU

PATIENT
  Sex: Female
  Weight: 69 kg

DRUGS (8)
  1. PRADAXA [Suspect]
     Dosage: 300 MG
     Dates: start: 20110722
  2. METFORMIN HCL [Concomitant]
     Dosage: 2000 MG
  3. ATACAND [Concomitant]
     Dosage: 32 MG
  4. DIGOXIN [Concomitant]
     Dosage: 250 MCG
  5. ISOPTIN [Concomitant]
  6. NATRILIX SR [Suspect]
     Dosage: 1.5 MG
     Dates: start: 20090905, end: 20111031
  7. VYTORIN [Suspect]
     Indication: BLOOD CHOLESTEROL INCREASED
     Dosage: 10/80 MG 1 DAILY
     Dates: start: 20090723, end: 20111031
  8. ZYLOPRIM [Concomitant]
     Dosage: 300 MG

REACTIONS (4)
  - BLOOD CREATINE PHOSPHOKINASE INCREASED [None]
  - BREAST CANCER [None]
  - GLOMERULAR FILTRATION RATE DECREASED [None]
  - WEIGHT DECREASED [None]
